FAERS Safety Report 8468827-7 (Version None)
Quarter: 2012Q2

REPORT INFORMATION
  Report Type: 
  Country: None (occurrence: None)
  Receive Date: 20120626
  Receipt Date: 20111215
  Transmission Date: 20120825
  Serious: Yes (Other)
  Sender: FDA-Public Use
  Company Number: US-ROCHE-1022380

PATIENT
  Sex: Female

DRUGS (3)
  1. PEGASYS [Suspect]
     Indication: HEPATITIS C
     Route: 058
     Dates: start: 20110820
  2. COPEGUS [Suspect]
     Indication: HEPATITIS C
     Dosage: 800 PER DAY DIVIDED DOSE
     Route: 048
     Dates: start: 20110820
  3. BOCEPREVIR [Suspect]
     Indication: HEPATITIS C
     Dates: start: 20110820

REACTIONS (2)
  - FULL BLOOD COUNT DECREASED [None]
  - ILL-DEFINED DISORDER [None]
